FAERS Safety Report 9302855 (Version 2)
Quarter: 2015Q4

REPORT INFORMATION
  Report Type: Spontaneous
  Country: US (occurrence: US)
  Receive Date: 20130522
  Receipt Date: 20151228
  Transmission Date: 20160305
  Serious: Yes (Hospitalization, Other)
  Sender: FDA-Public Use
  Company Number: US-BAYER-2013-061200

PATIENT
  Age: 37 Year
  Sex: Female
  Weight: 68.03 kg

DRUGS (9)
  1. LIPITOR [Concomitant]
     Active Substance: ATORVASTATIN CALCIUM
  2. LOPRESSOR [Concomitant]
     Active Substance: METOPROLOL TARTRATE
  3. INTEGRILIN [Concomitant]
     Active Substance: EPTIFIBATIDE
  4. ENALAPRIL [Concomitant]
     Active Substance: ENALAPRIL
  5. YAZ [Suspect]
     Active Substance: DROSPIRENONE\ETHINYL ESTRADIOL
  6. NITROGLYCERIN. [Concomitant]
     Active Substance: NITROGLYCERIN
  7. ACETAMINOPHEN AND CODEINE [Concomitant]
     Active Substance: ACETAMINOPHEN\CODEINE PHOSPHATE
  8. PLAVIX [Concomitant]
     Active Substance: CLOPIDOGREL BISULFATE
  9. METOPROLOL [Concomitant]
     Active Substance: METOPROLOL

REACTIONS (5)
  - Intracardiac thrombus [None]
  - Deep vein thrombosis [None]
  - Embolism venous [None]
  - Embolism arterial [None]
  - Acute myocardial infarction [None]

NARRATIVE: CASE EVENT DATE: 20081008
